FAERS Safety Report 8273579-X (Version None)
Quarter: 2012Q2

REPORT INFORMATION
  Report Type: 
  Country: None (occurrence: None)
  Receive Date: 20120409
  Receipt Date: 20120409
  Transmission Date: 20120825
  Serious: Yes (Life-Threatening, Hospitalization)
  Sender: FDA-Public Use
  Company Number: None

PATIENT
  Age: 72 Year
  Sex: Male
  Weight: 45.6 kg

DRUGS (2)
  1. METHADONE HCL [Suspect]
     Indication: PAIN
     Dosage: 5MG BID PO
     Route: 048
     Dates: start: 20110608, end: 20110612
  2. VENLAFAXINE [Suspect]
     Indication: DEPRESSION
     Dosage: 75 MG BID PO
     Route: 048
     Dates: start: 20110503, end: 20110624

REACTIONS (9)
  - DELIRIUM [None]
  - MYOCLONUS [None]
  - HYPERHIDROSIS [None]
  - TACHYCARDIA [None]
  - SEROTONIN SYNDROME [None]
  - MENTAL STATUS CHANGES [None]
  - CONFUSIONAL STATE [None]
  - RESPIRATORY DISORDER [None]
  - RESTLESSNESS [None]
